FAERS Safety Report 7374190-5 (Version None)
Quarter: 2011Q1

REPORT INFORMATION
  Report Type: 
  Country: None (occurrence: None)
  Receive Date: 20110325
  Receipt Date: 20110317
  Transmission Date: 20110831
  Serious: Yes (Other)
  Sender: FDA-Public Use
  Company Number: US-PFIZER INC-2010175754

PATIENT
  Sex: Male

DRUGS (14)
  1. CHANTIX [Suspect]
     Dosage: UNK
     Dates: start: 20090401, end: 20090701
  2. KLONOPIN [Concomitant]
     Indication: DEPRESSION
  3. CELEXA [Concomitant]
     Indication: DEPRESSION
  4. CHANTIX [Suspect]
     Indication: SMOKING CESSATION THERAPY
     Dosage: STARTER PACK AND 2 CONTINUING MONTH PACKS
     Dates: start: 20071218, end: 20080301
  5. CELEXA [Concomitant]
     Indication: ANXIETY
     Dosage: UNK
     Dates: start: 20020101, end: 20100101
  6. MOTRIN [Concomitant]
     Indication: PAIN
     Dosage: UNK
     Dates: start: 20030101, end: 20100101
  7. CLONIDINE [Concomitant]
     Indication: ANXIETY
     Dosage: UNK
     Dates: start: 20060101, end: 20100101
  8. ZONEGRAN [Concomitant]
     Indication: WITHDRAWAL SYNDROME
     Dosage: UNK
     Dates: start: 20060101, end: 20100101
  9. SEROQUEL [Concomitant]
     Dosage: UNK
     Dates: start: 20070101, end: 20100101
  10. REQUIP [Concomitant]
     Indication: RESTLESS LEGS SYNDROME
     Dosage: UNK
     Dates: start: 20060101, end: 20100101
  11. PROMETHAZINE [Concomitant]
     Indication: NAUSEA
     Dosage: UNK
     Dates: start: 20030101, end: 20090101
  12. KLONOPIN [Concomitant]
     Indication: ANXIETY
     Dosage: UNK
     Dates: start: 20030101, end: 20100101
  13. WELLBUTRIN [Concomitant]
     Indication: SMOKING CESSATION THERAPY
     Dosage: UNK
     Dates: start: 20040101, end: 20100101
  14. ZANTAC [Concomitant]
     Indication: GASTROOESOPHAGEAL REFLUX DISEASE
     Dosage: UNK
     Dates: start: 20040101, end: 20100101

REACTIONS (8)
  - SUICIDE ATTEMPT [None]
  - AGGRESSION [None]
  - NIGHTMARE [None]
  - DEPRESSION [None]
  - HEADACHE [None]
  - INSOMNIA [None]
  - INTENTIONAL OVERDOSE [None]
  - ANGER [None]
